FAERS Safety Report 6150631-6 (Version None)
Quarter: 2009Q2

REPORT INFORMATION
  Report Type: 
  Country: None (occurrence: None)
  Receive Date: 20090408
  Receipt Date: 20090408
  Transmission Date: 20091009
  Serious: Yes (Life-Threatening, Hospitalization)
  Sender: FDA-Public Use
  Company Number: None

PATIENT
  Age: 53 Year
  Sex: Male
  Weight: 53 kg

DRUGS (1)
  1. CETUXIMAB 100 MG IMCLONE [Suspect]
     Indication: LIP AND/OR ORAL CAVITY CANCER
     Dosage: 500 MG/ M2 Q 2 WEEKS IV DRIP
     Route: 041
     Dates: start: 20090407, end: 20090407

REACTIONS (4)
  - DYSPNOEA [None]
  - INFUSION RELATED REACTION [None]
  - THROAT IRRITATION [None]
  - UNRESPONSIVE TO STIMULI [None]
